FAERS Safety Report 15663277 (Version 2)
Quarter: 2019Q1

REPORT INFORMATION
  Report Type: Spontaneous
  Country: FR (occurrence: FR)
  Receive Date: 20181128
  Receipt Date: 20190318
  Transmission Date: 20190417
  Serious: Yes (Hospitalization, Other)
  Sender: FDA-Public Use
  Company Number: FR-AUROBINDO-AUR-APL-2018-056791

PATIENT

DRUGS (3)
  1. MIRTAZAPINE. [Suspect]
     Active Substance: MIRTAZAPINE
     Indication: PRODUCT USED FOR UNKNOWN INDICATION
     Dosage: UNK
     Route: 065
  2. KAYEXALATE [Suspect]
     Active Substance: SODIUM POLYSTYRENE SULFONATE
     Indication: HYPERKALAEMIA
     Dosage: 30 GRAM, ONCE A DAY
     Route: 048
  3. CYAMEMAZINE [Suspect]
     Active Substance: CYAMEMAZINE
     Indication: PRODUCT USED FOR UNKNOWN INDICATION
     Dosage: UNK
     Route: 065

REACTIONS (11)
  - Electrocardiogram QRS complex prolonged [Unknown]
  - Duodenitis [Recovered/Resolved]
  - Coma [Unknown]
  - Melaena [Recovered/Resolved]
  - Hypotension [Unknown]
  - Hyperkalaemia [Unknown]
  - Intentional overdose [Unknown]
  - Duodenal ulcer [Recovered/Resolved]
  - Toxicity to various agents [Unknown]
  - Ischaemic gastritis [Recovered/Resolved]
  - Blood creatinine increased [Unknown]
